FAERS Safety Report 7539954-3 (Version None)
Quarter: 2011Q2

REPORT INFORMATION
  Report Type: 
  Country: None (occurrence: None)
  Receive Date: 20110603
  Receipt Date: 20110520
  Transmission Date: 20111010
  Serious: Yes (Hospitalization, Other)
  Sender: FDA-Public Use
  Company Number: 2010AC000384

PATIENT
  Age: 80 Year
  Sex: Female

DRUGS (17)
  1. ATENOLOL [Concomitant]
  2. FUROSEMIDE [Concomitant]
  3. NEXIUM [Concomitant]
  4. SPIRIVA [Concomitant]
  5. AVELOX [Concomitant]
  6. ASPIRIN [Concomitant]
  7. DIGOXIN [Suspect]
     Indication: ATRIAL FIBRILLATION
     Dosage: 0.0625 MG, QD, PO
     Route: 048
     Dates: start: 20071111, end: 20080210
  8. DILTIAZEM [Concomitant]
  9. SINGULAIR [Concomitant]
  10. DIGOXIN [Suspect]
     Dosage: PO
     Route: 048
     Dates: start: 20050101, end: 20071101
  11. LISINOPRIL [Concomitant]
  12. LIPITOR [Concomitant]
  13. ZYRTEC [Concomitant]
  14. DIGOXIN [Suspect]
     Dosage: 0.125 MG, QD, PO
     Route: 048
     Dates: start: 20080121, end: 20080301
  15. HYDROCHLOROTHIAZIDE [Concomitant]
  16. NITROGLYCERIN [Concomitant]
  17. ACTONEL [Concomitant]

REACTIONS (17)
  - ECONOMIC PROBLEM [None]
  - VISUAL IMPAIRMENT [None]
  - DYSPNOEA [None]
  - CHEST PAIN [None]
  - MULTIPLE INJURIES [None]
  - CONFUSIONAL STATE [None]
  - NAUSEA [None]
  - PAIN [None]
  - CARDIAC DISORDER [None]
  - ANXIETY [None]
  - HYPOTENSION [None]
  - PALPITATIONS [None]
  - ILL-DEFINED DISORDER [None]
  - DYSPHONIA [None]
  - BRADYCARDIA [None]
  - ARRHYTHMIA [None]
  - THROAT IRRITATION [None]
